FAERS Safety Report 20647999 (Version 2)
Quarter: 2022Q2

REPORT INFORMATION
  Report Type: Report from Study
  Country: US (occurrence: US)
  Receive Date: 20220329
  Receipt Date: 20220414
  Transmission Date: 20220721
  Serious: Yes (Death, Other)
  Sender: FDA-Public Use
  Company Number: US-GLAXOSMITHKLINE-US2021AMR222580

PATIENT
  Sex: Male
  Weight: 84.4 kg

DRUGS (1)
  1. BELANTAMAB MAFODOTIN [Suspect]
     Active Substance: BELANTAMAB MAFODOTIN
     Indication: Plasma cell myeloma
     Dosage: UNK
     Dates: start: 20211005, end: 20211026

REACTIONS (4)
  - Biliary obstruction [Fatal]
  - Plasma cell myeloma [Fatal]
  - Keratopathy [Unknown]
  - Visual acuity reduced [Unknown]
